FAERS Safety Report 22035048 (Version 1)
Quarter: 2023Q1

REPORT INFORMATION
  Report Type: Other
  Country: None (occurrence: IN)
  Receive Date: 20230224
  Receipt Date: 20230224
  Transmission Date: 20230418
  Serious: Yes (Life-Threatening, Other)
  Sender: FDA-Public Use
  Company Number: IN-Spectra Medical Devices, LLC-2138412

PATIENT
  Sex: Female
  Weight: 7 kg

DRUGS (1)
  1. LIDOCAINE HYDROCHLORIDE ANHYDROUS [Suspect]
     Active Substance: LIDOCAINE HYDROCHLORIDE ANHYDROUS
     Indication: Local anaesthesia
     Route: 065

REACTIONS (3)
  - Status epilepticus [Recovered/Resolved]
  - Respiratory depression [Unknown]
  - Unresponsive to stimuli [Recovered/Resolved]
